FAERS Safety Report 7591158-4 (Version None)
Quarter: 2011Q3

REPORT INFORMATION
  Report Type: 
  Country: None (occurrence: None)
  Receive Date: 20110705
  Receipt Date: 20110624
  Transmission Date: 20111222
  Serious: Yes (Hospitalization, Other)
  Sender: FDA-Public Use
  Company Number: US-ASTRAZENECA-2010SE38059

PATIENT
  Age: 64 Year
  Sex: Female

DRUGS (2)
  1. NEXIUM [Suspect]
     Dosage: 40 MG TWO TIMES A DAY
     Route: 048
  2. NEXIUM [Suspect]
     Route: 048

REACTIONS (9)
  - HAEMORRHAGE [None]
  - OESOPHAGEAL DISORDER [None]
  - DRUG EFFECT DECREASED [None]
  - OESOPHAGITIS [None]
  - GASTROOESOPHAGEAL SPHINCTER INSUFFICIENCY [None]
  - OESOPHAGEAL HAEMORRHAGE [None]
  - GASTROINTESTINAL HAEMORRHAGE [None]
  - GASTRIC DISORDER [None]
  - DRUG DOSE OMISSION [None]
